FAERS Safety Report 8994652 (Version 1)
Quarter: 2012Q4

REPORT INFORMATION
  Report Type: Spontaneous
  Country: US (occurrence: None)
  Receive Date: 20121221
  Receipt Date: 20121221
  Transmission Date: 20130627
  Serious: Yes (Other)
  Sender: FDA-Public Use
  Company Number: 2135225-2012-00097

PATIENT
  Sex: Female

DRUGS (2)
  1. POLIDOCANOL [Suspect]
     Indication: SCLEROTHERAPY
     Dosage: 2CC, FIRST SESSION, INJ
     Dates: start: 20120709
  2. 0.5% ASCLERA [Concomitant]

REACTIONS (10)
  - Blister [None]
  - Pain in extremity [None]
  - Skin depigmentation [None]
  - Immune system disorder [None]
  - Neuropathy peripheral [None]
  - Abasia [None]
  - Dysstasia [None]
  - Insomnia [None]
  - Gastric disorder [None]
  - Hypopnoea [None]
